FAERS Safety Report 18763130 (Version 3)
Quarter: 2021Q1

REPORT INFORMATION
  Report Type: Report from Study
  Country: GB (occurrence: GB)
  Receive Date: 20210120
  Receipt Date: 20210218
  Transmission Date: 20210419
  Serious: Yes (Hospitalization, Other)
  Sender: FDA-Public Use
  Company Number: GB-B.I. PHARMACEUTICALS,INC./RIDGEFIELD-2021-BI-075974

PATIENT
  Age: 82 Year
  Sex: Female
  Weight: 71.1 kg

DRUGS (7)
  1. METOLAZONE. [Concomitant]
     Active Substance: METOLAZONE
     Indication: CARDIAC FAILURE
     Route: 048
     Dates: start: 20191231
  2. WARFARIN [Concomitant]
     Active Substance: WARFARIN
     Indication: ATRIAL FIBRILLATION
     Dosage: UNIT: MILLIGRAM
     Route: 048
     Dates: start: 20060101
  3. BISOPROLOL [Concomitant]
     Active Substance: BISOPROLOL
     Indication: PRODUCT USED FOR UNKNOWN INDICATION
     Route: 048
     Dates: start: 20190509
  4. EMPAGLIFLOZIN [Suspect]
     Active Substance: EMPAGLIFLOZIN
     Indication: CARDIAC FAILURE
     Route: 048
     Dates: start: 20190729, end: 20201027
  5. ATORVASTATIN [Concomitant]
     Active Substance: ATORVASTATIN
     Indication: HYPERCHOLESTEROLAEMIA
     Route: 048
     Dates: start: 20060101
  6. BUMETANIDE. [Suspect]
     Active Substance: BUMETANIDE
     Indication: CARDIAC FAILURE
     Route: 048
     Dates: start: 20190420
  7. SPIRONOLACTONE. [Suspect]
     Active Substance: SPIRONOLACTONE
     Indication: CARDIAC FAILURE
     Route: 048
     Dates: start: 20190509

REACTIONS (1)
  - Acute kidney injury [Not Recovered/Not Resolved]

NARRATIVE: CASE EVENT DATE: 20201027
